FAERS Safety Report 7077351-8 (Version None)
Quarter: 2010Q4

REPORT INFORMATION
  Report Type: 
  Country: None (occurrence: None)
  Receive Date: 20101101
  Receipt Date: 20101026
  Transmission Date: 20110411
  Serious: Yes (Death, Hospitalization)
  Sender: FDA-Public Use
  Company Number: ES-CELGENEUS-144-50794-10102331

PATIENT
  Age: 76 Year
  Sex: Female

DRUGS (1)
  1. VIDAZA [Suspect]
     Route: 065
     Dates: start: 20100707, end: 20100906

REACTIONS (3)
  - ASPIRATION [None]
  - DEMENTIA [None]
  - VOMITING [None]
